FAERS Safety Report 10229956 (Version 1)
Quarter: 2014Q2

REPORT INFORMATION
  Report Type: Spontaneous
  Country: US (occurrence: None)
  Receive Date: 20140609
  Receipt Date: 20140609
  Transmission Date: 20141212
  Serious: Yes (Hospitalization)
  Sender: FDA-Public Use
  Company Number: UNT-2014-001397

PATIENT
  Age: 35 Year
  Sex: Male
  Weight: 111.1 kg

DRUGS (3)
  1. REMODULIN (TREPROSTINIL SODIUM) INJECTION, 1MG/ML [Suspect]
     Indication: PULMONARY ARTERIAL HYPERTENSION
     Route: 041
     Dates: start: 20130418
  2. TRACLEER /01587701/ (BOSENTAN) [Concomitant]
  3. WARFARIN (WARFARIN) [Concomitant]

REACTIONS (1)
  - Dyspnoea exertional [None]
